FAERS Safety Report 22152370 (Version 2)
Quarter: 2023Q2

REPORT INFORMATION
  Report Type: Spontaneous
  Country: US (occurrence: US)
  Receive Date: 20230329
  Receipt Date: 20230403
  Transmission Date: 20230721
  Serious: Yes (Life-Threatening, Hospitalization, Other)
  Sender: FDA-Public Use
  Company Number: US-HORIZON THERAPEUTICS-HZN-2022-009138

PATIENT

DRUGS (18)
  1. PREDNISONE [Suspect]
     Active Substance: PREDNISONE
     Indication: Bronchopulmonary aspergillosis
     Dosage: 0.5 MG/KG
     Route: 065
     Dates: start: 2022
  2. PREDNISONE [Suspect]
     Active Substance: PREDNISONE
     Indication: Organising pneumonia
     Dosage: PREDNISONE TAPER WAS COMPLETED 10 DAYS AFTER DISCONTINUATION OF NIRMATRELVIR/RITONAVIR
     Route: 065
     Dates: end: 2022
  3. DEXAMETHASONE [Suspect]
     Active Substance: DEXAMETHASONE
     Indication: Lower respiratory tract infection viral
     Dosage: UNK
     Route: 065
     Dates: start: 2022, end: 202204
  4. REMDESIVIR [Concomitant]
     Active Substance: REMDESIVIR
     Indication: COVID-19
     Dosage: UNK
     Route: 042
     Dates: start: 202203
  5. REMDESIVIR [Concomitant]
     Active Substance: REMDESIVIR
     Indication: Lower respiratory tract infection viral
  6. AMBISOME [Concomitant]
     Active Substance: AMPHOTERICIN B
     Indication: Product used for unknown indication
     Dosage: 5 MG/KG
  7. AMBISOME [Concomitant]
     Active Substance: AMPHOTERICIN B
     Dosage: STOPPED
  8. OXYGEN [Concomitant]
     Active Substance: OXYGEN
     Indication: Lower respiratory tract infection viral
     Dosage: 3 L
     Route: 045
     Dates: start: 2022
  9. OXYGEN [Concomitant]
     Active Substance: OXYGEN
     Dosage: 10 L
     Route: 045
     Dates: start: 202204
  10. OXYGEN [Concomitant]
     Active Substance: OXYGEN
     Dosage: 2 L
     Route: 045
     Dates: start: 2022
  11. OXYGEN [Concomitant]
     Active Substance: OXYGEN
     Dosage: 15 L
     Route: 045
     Dates: start: 202204
  12. OXYGEN [Concomitant]
     Active Substance: OXYGEN
     Dosage: 4 L
     Route: 045
     Dates: start: 2022
  13. OXYGEN [Concomitant]
     Active Substance: OXYGEN
     Dosage: 8 L
     Route: 045
     Dates: start: 202204
  14. OXYGEN [Concomitant]
     Active Substance: OXYGEN
     Dosage: 8 L
     Route: 045
     Dates: start: 2022
  15. OXYGEN [Concomitant]
     Active Substance: OXYGEN
     Dosage: OFF OXYGEN
  16. NIRMATRELVIR\RITONAVIR [Concomitant]
     Active Substance: NIRMATRELVIR\RITONAVIR
     Indication: Product used for unknown indication
     Dosage: UNK
  17. NIRMATRELVIR\RITONAVIR [Concomitant]
     Active Substance: NIRMATRELVIR\RITONAVIR
     Dosage: DISCONTINUED
  18. ISAVUCONAZOLE [Concomitant]
     Active Substance: ISAVUCONAZOLE
     Indication: Product used for unknown indication

REACTIONS (3)
  - COVID-19 pneumonia [Recovered/Resolved]
  - SARS-CoV-2 RNA increased [Recovered/Resolved]
  - Off label use [Unknown]

NARRATIVE: CASE EVENT DATE: 20220101
